FAERS Safety Report 6508158-5 (Version None)
Quarter: 2009Q4

REPORT INFORMATION
  Report Type: 
  Country: None (occurrence: None)
  Receive Date: 20091221
  Receipt Date: 20090406
  Transmission Date: 20100525
  Serious: No
  Sender: FDA-Public Use
  Company Number: US-ASTRAZENECA-2008UW27238

PATIENT
  Age: 79 Year
  Sex: Male
  Weight: 78.9 kg

DRUGS (3)
  1. CRESTOR [Suspect]
     Indication: HYPERLIPIDAEMIA
     Dosage: 5 MG
     Route: 048
     Dates: start: 20081203
  2. BABY ASPIRIN [Concomitant]
  3. COQ10 [Concomitant]

REACTIONS (2)
  - DIZZINESS [None]
  - FLATULENCE [None]
